FAERS Safety Report 6972834-0 (Version None)
Quarter: 2010Q3

REPORT INFORMATION
  Report Type: 
  Country: None (occurrence: None)
  Receive Date: 20100909
  Receipt Date: 20100827
  Transmission Date: 20110219
  Serious: Yes (Hospitalization)
  Sender: FDA-Public Use
  Company Number: PHHY2009FR40232

PATIENT
  Sex: Male

DRUGS (1)
  1. CGP 57148B T35717+ [Suspect]
     Indication: GASTROINTESTINAL STROMAL TUMOUR
     Dosage: 400 MG DAILY
     Dates: start: 20080225

REACTIONS (4)
  - FISTULA [None]
  - HERNIA [None]
  - INFECTION [None]
  - SURGERY [None]
